FAERS Safety Report 6435748-0 (Version None)
Quarter: 2009Q4

REPORT INFORMATION
  Report Type: 
  Country: None (occurrence: None)
  Receive Date: 20091111
  Receipt Date: 20091029
  Transmission Date: 20100525
  Serious: No
  Sender: FDA-Public Use
  Company Number: US-JNJFOC-20091100652

PATIENT
  Sex: Female
  Weight: 53.07 kg

DRUGS (4)
  1. DURAGESIC-100 [Suspect]
     Indication: NEUROPATHY PERIPHERAL
     Route: 062
  2. LUNESTA [Concomitant]
     Indication: SLEEP DISORDER THERAPY
     Route: 065
  3. ABILIFY [Concomitant]
     Indication: ANTIDEPRESSANT THERAPY
     Route: 065
  4. PAXIL [Concomitant]
     Indication: ANTIDEPRESSANT THERAPY
     Route: 065

REACTIONS (7)
  - APPLICATION SITE EROSION [None]
  - APPLICATION SITE PRURITUS [None]
  - APPLICATION SITE REACTION [None]
  - DRUG DOSE OMISSION [None]
  - DRUG EFFECT DECREASED [None]
  - DRUG INEFFECTIVE [None]
  - URTICARIA [None]
